FAERS Safety Report 5365072-9 (Version None)
Quarter: 2007Q2

REPORT INFORMATION
  Report Type: 
  Country: None (occurrence: None)
  Receive Date: 20070621
  Receipt Date: 20070614
  Transmission Date: 20071010
  Serious: Yes (Other)
  Sender: FDA-Public Use
  Company Number: HQWYE644415JUN07

PATIENT
  Sex: Female
  Weight: 56.75 kg

DRUGS (4)
  1. EFFEXOR [Suspect]
     Indication: ANXIETY
     Route: 048
     Dates: start: 20060901
  2. RISPERIDONE [Concomitant]
     Indication: INSOMNIA
     Dosage: UNKNOWN; HS
     Route: 048
  3. LEVOTHYROXINE SODIUM [Concomitant]
     Indication: HYPOTHYROIDISM
     Route: 048
  4. BUSPIRONE HCL [Concomitant]
     Indication: ANXIETY
     Route: 048

REACTIONS (2)
  - AMNESIA [None]
  - UNEVALUABLE EVENT [None]
